FAERS Safety Report 9570912 (Version 1)
Quarter: 2013Q4

REPORT INFORMATION
  Report Type: Spontaneous
  Country: GB (occurrence: GB)
  Receive Date: 20131001
  Receipt Date: 20131001
  Transmission Date: 20140711
  Serious: Yes (Other)
  Sender: FDA-Public Use
  Company Number: GB-EMCURE-000717

PATIENT
  Age: 62 Year
  Sex: Male

DRUGS (4)
  1. CARMUSTINE [Suspect]
     Indication: BONE MARROW TRANSPLANT
     Dosage: DOSE OF 602.73MG (BASED UPON 300MG/M2)
     Route: 042
     Dates: start: 20130918, end: 20130918
  2. SALBUTAMOL [Concomitant]
  3. PREGABALIN [Concomitant]
  4. BEHISTIN [Concomitant]

REACTIONS (3)
  - Blood pressure decreased [Recovered/Resolved]
  - Wheezing [Recovered/Resolved]
  - Dyspnoea [Recovered/Resolved]
